FAERS Safety Report 4910446-0 (Version None)
Quarter: 2006Q1

REPORT INFORMATION
  Report Type: 
  Country: None (occurrence: None)
  Receive Date: 20060209
  Receipt Date: 20060127
  Transmission Date: 20060701
  Serious: Yes (Death, Hospitalization)
  Sender: FDA-Public Use
  Company Number: 06-NIP00005

PATIENT
  Age: 67 Year
  Sex: Male
  Weight: 97.6 kg

DRUGS (3)
  1. NIPENT [Suspect]
     Indication: CHRONIC LYMPHOCYTIC LEUKAEMIA
     Dosage: 0.2143 MG/M2 (4 MG/M2, DAY 1 ON WEEKS 1, 4, 7, 10, 13, AND 16)
     Dates: start: 20051228, end: 20060123
  2. RITUXIMAB (RITUXIMAB) (RITUXIMAB) [Suspect]
     Indication: CHRONIC LYMPHOCYTIC LEUKAEMIA
     Dosage: 53.5714 MG/M2 (375 MG/M2, WEEK 1 X 3 DAYS, WEEKS 4-16 X 1 DAY/WEEK)
     Dates: start: 20051228, end: 20060123
  3. CYTOXAN [Suspect]
     Indication: CHRONIC LYMPHOCYTIC LEUKAEMIA
     Dosage: 32.1429 MG/M2 (600 MG/M2, DAY 1 ON WEEKS 1, 4, 7, 10, 13, AND 16)
     Dates: start: 20051228, end: 20060123

REACTIONS (11)
  - ACUTE RESPIRATORY DISTRESS SYNDROME [None]
  - CARDIOMEGALY [None]
  - HEPATOSPLENOMEGALY [None]
  - LUNG CONSOLIDATION [None]
  - LUNG NEOPLASM [None]
  - PULMONARY FIBROSIS [None]
  - RENAL FAILURE [None]
  - RESPIRATORY FAILURE [None]
  - SEPSIS SYNDROME [None]
  - URINARY BLADDER HAEMORRHAGE [None]
  - VENTRICULAR HYPERTROPHY [None]
